FAERS Safety Report 12147358 (Version 2)
Quarter: 2016Q2

REPORT INFORMATION
  Report Type: Spontaneous
  Country: US (occurrence: US)
  Receive Date: 20160304
  Receipt Date: 20160412
  Transmission Date: 20160815
  Serious: No
  Sender: FDA-Public Use
  Company Number: US-TAKEDA-2015TUS002624

PATIENT
  Age: 65 Year
  Sex: Female
  Weight: 64.4 kg

DRUGS (6)
  1. VITAMIN [Concomitant]
     Active Substance: VITAMINS
     Indication: SUPPLEMENTATION THERAPY
     Dosage: (SAVERAL YEARS)
  2. DEXILANT [Suspect]
     Active Substance: DEXLANSOPRAZOLE
     Indication: ULCER
     Dosage: 60 MG, QD
     Route: 048
     Dates: start: 201411
  3. DEXILANT [Suspect]
     Active Substance: DEXLANSOPRAZOLE
     Indication: GASTROOESOPHAGEAL REFLUX DISEASE
  4. LOVAZA [Concomitant]
     Active Substance: OMEGA-3-ACID ETHYL ESTERS
     Indication: BLOOD TRIGLYCERIDES INCREASED
     Dosage: 1 G, UNK(SAVERAL YEARS)
  5. NIASPAN [Concomitant]
     Active Substance: NIACIN
     Indication: BLOOD TRIGLYCERIDES INCREASED
     Dosage: 1000 MG, UNK (SAVERAL YEARS)
  6. CALCIUM [Concomitant]
     Active Substance: CALCIUM
     Indication: SUPPLEMENTATION THERAPY
     Dosage: SAVERAL YEARS

REACTIONS (1)
  - Sinusitis [Not Recovered/Not Resolved]

NARRATIVE: CASE EVENT DATE: 20150204
